FAERS Safety Report 20637675 (Version 1)
Quarter: 2022Q1

REPORT INFORMATION
  Report Type: Spontaneous
  Country: FR (occurrence: None)
  Receive Date: 20220325
  Receipt Date: 20220325
  Transmission Date: 20220423
  Serious: Yes (Hospitalization)
  Sender: FDA-Public Use
  Company Number: FR-Merck Healthcare KGaA-9307335

PATIENT
  Sex: Male

DRUGS (1)
  1. CHORIOGONADOTROPIN ALFA [Suspect]
     Active Substance: CHORIOGONADOTROPIN ALFA
     Indication: Product used for unknown indication
     Dosage: 2 INJECTIONS OF ONE OVITRELLE, AGAIN A PRESCRIPTION OF INJECTION PER WEEK (TOTALITY IN ONE TIME)

REACTIONS (4)
  - Chest pain [Unknown]
  - Drug intolerance [Unknown]
  - Intentional product misuse [Unknown]
  - Off label use [Unknown]
